FAERS Safety Report 16497791 (Version 2)
Quarter: 2019Q3

REPORT INFORMATION
  Report Type: Spontaneous
  Country: GB (occurrence: GB)
  Receive Date: 20190628
  Receipt Date: 20190830
  Transmission Date: 20191004
  Serious: Yes (Other)
  Sender: FDA-Public Use
  Company Number: GB-GILEAD-2019-0415665

PATIENT
  Age: 48 Year
  Sex: Male
  Weight: 95 kg

DRUGS (4)
  1. BIKTARVY [Suspect]
     Active Substance: BICTEGRAVIR SODIUM\EMTRICITABINE\TENOFOVIR ALAFENAMIDE FUMARATE
     Indication: HIV INFECTION
  2. ABACAVIR AND LAMIVUDINE [Concomitant]
     Active Substance: ABACAVIR SULFATE\LAMIVUDINE
  3. RILPIVIRINE HYDROCHLORIDE [Concomitant]
     Active Substance: RILPIVIRINE HYDROCHLORIDE
  4. BIKTARVY [Suspect]
     Active Substance: BICTEGRAVIR SODIUM\EMTRICITABINE\TENOFOVIR ALAFENAMIDE FUMARATE
     Indication: ANTIRETROVIRAL THERAPY
     Dosage: 1 DOSAGE FORM, QD
     Route: 048
     Dates: start: 20190408, end: 20190530

REACTIONS (8)
  - Affective disorder [Recovering/Resolving]
  - Emotional disorder [Recovering/Resolving]
  - Lethargy [Recovering/Resolving]
  - Suicidal ideation [Recovering/Resolving]
  - Affect lability [Unknown]
  - Memory impairment [Recovering/Resolving]
  - Feeling abnormal [Recovering/Resolving]
  - Depressed mood [Unknown]

NARRATIVE: CASE EVENT DATE: 20190414
